FAERS Safety Report 24460448 (Version 1)
Quarter: 2024Q4

REPORT INFORMATION
  Report Type: Spontaneous
  Country: US (occurrence: None)
  Receive Date: 20241018
  Receipt Date: 20241018
  Transmission Date: 20250115
  Serious: Yes (Hospitalization)
  Sender: Public
  Company Number: None

PATIENT
  Sex: Female

DRUGS (4)
  1. SILDENAFIL CITRATE [Suspect]
     Active Substance: SILDENAFIL CITRATE
     Indication: Pulmonary arterial hypertension
     Dosage: FREQUENCY : TWICE A DAY;?
     Route: 048
     Dates: start: 202203
  2. VELETRI SDV [Concomitant]
  3. OPSUMIT [Concomitant]
  4. WINREVAIR SDV [Concomitant]

REACTIONS (3)
  - Vascular device infection [None]
  - Weight decreased [None]
  - Therapy interrupted [None]
